FAERS Safety Report 20967960 (Version 1)
Quarter: 2022Q2

REPORT INFORMATION
  Report Type: Spontaneous
  Country: US (occurrence: None)
  Receive Date: 20220616
  Receipt Date: 20220616
  Transmission Date: 20220720
  Serious: Yes (Other)
  Sender: FDA-Public Use
  Company Number: None

PATIENT
  Age: 43 Year
  Sex: Female
  Weight: 67.5 kg

DRUGS (3)
  1. FLAGYL ER [Suspect]
     Active Substance: METRONIDAZOLE
     Indication: Vaginal infection
     Dosage: OTHER QUANTITY : 1 TABLET(S);?FREQUENCY : TWICE A DAY;?
     Route: 048
     Dates: start: 20220420, end: 20220427
  2. FLONASE [Concomitant]
     Active Substance: FLUTICASONE PROPIONATE
  3. AZELASTINE [Concomitant]
     Active Substance: AZELASTINE

REACTIONS (7)
  - Depression [None]
  - Crying [None]
  - Headache [None]
  - Seizure [None]
  - Insomnia [None]
  - Hypersensitivity [None]
  - Paraesthesia [None]

NARRATIVE: CASE EVENT DATE: 20220421
